FAERS Safety Report 9364645 (Version 1)
Quarter: 2013Q2

REPORT INFORMATION
  Report Type: Spontaneous
  Country: FR (occurrence: FR)
  Receive Date: 20130624
  Receipt Date: 20130624
  Transmission Date: 20140414
  Serious: Yes (Hospitalization)
  Sender: FDA-Public Use
  Company Number: FR-CUBIST PHARMACEUTICAL, INC.-2013CBST000521

PATIENT
  Sex: 0

DRUGS (4)
  1. CUBICIN [Suspect]
     Indication: OSTEOMYELITIS
     Dosage: 700 MG, UNK
     Route: 042
     Dates: start: 201303, end: 20130415
  2. CUBICIN [Suspect]
     Indication: OFF LABEL USE
  3. FUCIDINE [Suspect]
     Indication: OSTEOMYELITIS
     Dosage: 4 DF, TID
     Route: 048
     Dates: start: 201303, end: 20130419
  4. FUCIDINE [Suspect]
     Dosage: 1500 MG, QD
     Route: 048

REACTIONS (2)
  - Hepatocellular injury [Recovered/Resolved]
  - Rhabdomyolysis [Recovering/Resolving]
